FAERS Safety Report 4763688-1 (Version None)
Quarter: 2005Q3

REPORT INFORMATION
  Report Type: 
  Country: None (occurrence: None)
  Receive Date: 20050908
  Receipt Date: 20050902
  Transmission Date: 20060218
  Serious: Yes (Other)
  Sender: FDA-Public Use
  Company Number: HOFFMAN-LA ROCHE

PATIENT
  Age: 53 Year
  Sex: Male

DRUGS (1)
  1. ACYCLOVIR [Suspect]
     Indication: DRUG USE FOR UNKNOWN INDICATION
     Route: 065

REACTIONS (4)
  - CYTOMEGALOVIRUS CHORIORETINITIS [None]
  - DIARRHOEA [None]
  - FATIGUE [None]
  - PYREXIA [None]
